FAERS Safety Report 11651446 (Version 1)
Quarter: 2015Q4

REPORT INFORMATION
  Report Type: Spontaneous
  Country: GB (occurrence: GB)
  Receive Date: 20151022
  Receipt Date: 20151022
  Transmission Date: 20160304
  Serious: Yes (Life-Threatening)
  Sender: FDA-Public Use
  Company Number: GB-ASTRAZENECA-2015SF01498

PATIENT
  Age: 63 Year
  Sex: Male

DRUGS (10)
  1. FERROUS SULFATE [Concomitant]
     Active Substance: FERROUS SULFATE\FERROUS SULFATE, DRIED
     Route: 048
  2. METRONIDAZOLE. [Concomitant]
     Active Substance: METRONIDAZOLE
     Route: 048
  3. FELODIPINE. [Concomitant]
     Active Substance: FELODIPINE
     Dosage: 5 MG, EVERYDAY, EVERY MORNING.
     Route: 048
  4. FUROSEMIDE. [Concomitant]
     Active Substance: FUROSEMIDE
     Dosage: 20 MG, EVERYDAY, EVERY MORNING.
     Route: 048
  5. FOLIC ACID. [Concomitant]
     Active Substance: FOLIC ACID
     Dosage: 5 MG, EVERYDAY,EVERY MORNING.
     Route: 048
  6. VALSARTAN. [Concomitant]
     Active Substance: VALSARTAN
     Dosage: 160 MG, EVERYDAY, EVERY MORNING.
     Route: 048
     Dates: end: 20151001
  7. RANITIDINE [Concomitant]
     Active Substance: RANITIDINE\RANITIDINE HYDROCHLORIDE
     Route: 048
     Dates: end: 20151001
  8. MEROPENEM. [Suspect]
     Active Substance: MEROPENEM
     Indication: BRAIN ABSCESS
     Route: 042
     Dates: start: 20150805, end: 20150902
  9. MEROPENEM. [Suspect]
     Active Substance: MEROPENEM
     Indication: BRAIN ABSCESS
     Route: 042
     Dates: start: 20150902, end: 20151001
  10. DALTEPARIN SODIUM [Concomitant]
     Active Substance: DALTEPARIN SODIUM
     Route: 058

REACTIONS (2)
  - Neutropenia [Recovered/Resolved]
  - Therapy change [Unknown]

NARRATIVE: CASE EVENT DATE: 20150925
